FAERS Safety Report 7424123-8 (Version None)
Quarter: 2011Q2

REPORT INFORMATION
  Report Type: 
  Country: None (occurrence: None)
  Receive Date: 20110411
  Receipt Date: 20110328
  Transmission Date: 20111010
  Serious: Yes (Hospitalization, Other)
  Sender: FDA-Public Use
  Company Number: 2011MA003124

PATIENT
  Age: 58 Year
  Sex: Female
  Weight: 113.3993 kg

DRUGS (9)
  1. GLIPIZIDE [Concomitant]
  2. TOPROL-XL [Concomitant]
  3. METOCLOPRAMIDE [Suspect]
     Indication: PRODUCT USED FOR UNKNOWN INDICATION
     Dosage: 10 MG, Q6H, PO
     Route: 048
     Dates: start: 20021001, end: 20091201
  4. PROTONIX [Concomitant]
  5. KLONOPIN [Concomitant]
  6. REMERON [Concomitant]
  7. BENTYL [Concomitant]
  8. UNIRETIC [Concomitant]
  9. VICODIN [Concomitant]

REACTIONS (14)
  - TIC [None]
  - TARDIVE DYSKINESIA [None]
  - EXCESSIVE EYE BLINKING [None]
  - DEPRESSION [None]
  - MUSCLE TWITCHING [None]
  - DRUG SCREEN POSITIVE [None]
  - DYSKINESIA [None]
  - RESTLESS LEGS SYNDROME [None]
  - IRRITABLE BOWEL SYNDROME [None]
  - ASTHENOPIA [None]
  - PAIN OF SKIN [None]
  - NEPHROLITHIASIS [None]
  - SPEECH DISORDER [None]
  - CONDITION AGGRAVATED [None]
